FAERS Safety Report 5987559-8 (Version None)
Quarter: 2008Q4

REPORT INFORMATION
  Report Type: 
  Country: None (occurrence: None)
  Receive Date: 20081209
  Receipt Date: 20081202
  Transmission Date: 20090506
  Serious: Yes (Hospitalization)
  Sender: FDA-Public Use
  Company Number: IL-ASTRAZENECA-2008SE05583

PATIENT
  Age: 62 Year

DRUGS (3)
  1. SEROQUEL [Suspect]
     Indication: BIPOLAR I DISORDER
     Route: 048
  2. TEGRETOL [Concomitant]
     Dosage: MORE THAN 1000 MG DAILY
  3. DEPALEPT [Concomitant]
     Dosage: MORE THAN 1000 MG DAILY

REACTIONS (3)
  - DISORIENTATION [None]
  - DIZZINESS [None]
  - SPEECH DISORDER [None]
